FAERS Safety Report 23816629 (Version 1)
Quarter: 2024Q2

REPORT INFORMATION
  Report Type: Other
  Country: CN (occurrence: None)
  Receive Date: 20240503
  Receipt Date: 20240503
  Transmission Date: 20240715
  Serious: Yes (Death)
  Sender: FDA-Public Use
  Company Number: CN-ROCHE-3556975

PATIENT
  Age: 61 Year
  Sex: Male

DRUGS (12)
  1. BEVACIZUMAB [Suspect]
     Active Substance: BEVACIZUMAB
     Indication: Lung adenocarcinoma
     Dosage: A FIRST-LINE TREATMENT REGIMEN
     Route: 065
     Dates: start: 20190808
  2. BEVACIZUMAB [Suspect]
     Active Substance: BEVACIZUMAB
     Dosage: SECOND-LINE THERAPY
     Route: 065
  3. BEVACIZUMAB [Suspect]
     Active Substance: BEVACIZUMAB
     Dosage: AS THIRD LINE THERAPY FOR SIX CYCLES
     Route: 065
  4. BEVACIZUMAB [Suspect]
     Active Substance: BEVACIZUMAB
     Dosage: FOURTH LINE TREATMENT
     Route: 065
     Dates: start: 20210415, end: 20210602
  5. BEVACIZUMAB [Suspect]
     Active Substance: BEVACIZUMAB
     Dosage: FOR 16 CYCLES
     Route: 065
     Dates: start: 20210625, end: 20220413
  6. GEFITINIB [Suspect]
     Active Substance: GEFITINIB
     Indication: Lung adenocarcinoma
     Dosage: AS FIRST LINE THERAPY
     Route: 065
  7. GEFITINIB [Suspect]
     Active Substance: GEFITINIB
     Dosage: AS SECOND LINE THERAPY FOR SIX CYCLES
     Route: 065
  8. OSIMERTINIB [Suspect]
     Active Substance: OSIMERTINIB
     Indication: Lung adenocarcinoma
     Dosage: AS SECOND LINE THERAPY
     Route: 065
  9. PEMETREXED [Suspect]
     Active Substance: PEMETREXED
     Indication: Lung adenocarcinoma
     Dosage: THIRD-LINE CHEMOTHERAPY FOR SIX CYCLES
     Route: 065
  10. CARBOPLATIN [Suspect]
     Active Substance: CARBOPLATIN
     Indication: Lung adenocarcinoma
     Dosage: AS THIRD LINE THERAPY FOR SIX CYCLES
     Route: 065
  11. PACLITAXEL [Suspect]
     Active Substance: PACLITAXEL
     Indication: Lung adenocarcinoma
     Route: 065
     Dates: start: 20210415, end: 20210602
  12. CAMRELIZUMAB [Suspect]
     Active Substance: CAMRELIZUMAB
     Indication: Lung adenocarcinoma
     Dosage: FOR 16 CYCLES
     Route: 065
     Dates: start: 20210625, end: 20220413

REACTIONS (1)
  - Disease progression [Fatal]
